FAERS Safety Report 7687936-3 (Version None)
Quarter: 2011Q3

REPORT INFORMATION
  Report Type: 
  Country: None (occurrence: None)
  Receive Date: 20110816
  Receipt Date: 20110816
  Transmission Date: 20111222
  Serious: Yes (Hospitalization)
  Sender: FDA-Public Use
  Company Number: None

PATIENT
  Sex: Male
  Weight: 90 kg

DRUGS (1)
  1. GEMCITABINE HYDROCHLORIDE [Suspect]
     Dosage: 5326 MG
     Dates: end: 20110721

REACTIONS (6)
  - DIARRHOEA [None]
  - BLOOD ALKALINE PHOSPHATASE INCREASED [None]
  - NEUTROPENIA [None]
  - CHILLS [None]
  - PYREXIA [None]
  - ASPARTATE AMINOTRANSFERASE INCREASED [None]
